FAERS Safety Report 4422095-1 (Version None)
Quarter: 2004Q3

REPORT INFORMATION
  Report Type: 
  Country: None (occurrence: None)
  Receive Date: 20040805
  Receipt Date: 20040720
  Transmission Date: 20050211
  Serious: Yes (Other)
  Sender: FDA-Public Use
  Company Number: A-US2003-04027

PATIENT
  Age: 71 Year
  Sex: Female

DRUGS (4)
  1. TRACLEER [Suspect]
     Dosage: 125 MG, BID, ORAL; 62.5 MG, BID ORAL; 62.5 MG, BID, ORAL
     Route: 048
     Dates: start: 20020319, end: 20020415
  2. TRACLEER [Suspect]
     Dosage: 125 MG, BID, ORAL; 62.5 MG, BID ORAL; 62.5 MG, BID, ORAL
     Route: 048
     Dates: start: 20020416, end: 20030825
  3. TRACLEER [Suspect]
     Dosage: 125 MG, BID, ORAL; 62.5 MG, BID ORAL; 62.5 MG, BID, ORAL
     Route: 048
     Dates: start: 20030826, end: 20031202
  4. REMODULIN [Concomitant]

REACTIONS (4)
  - ALANINE AMINOTRANSFERASE INCREASED [None]
  - ASPARTATE AMINOTRANSFERASE INCREASED [None]
  - BLOOD ALKALINE PHOSPHATASE INCREASED [None]
  - BLOOD BILIRUBIN INCREASED [None]
